FAERS Safety Report 6687252-2 (Version None)
Quarter: 2010Q2

REPORT INFORMATION
  Report Type: 
  Country: None (occurrence: None)
  Receive Date: 20100419
  Receipt Date: 20100412
  Transmission Date: 20101027
  Serious: Yes (Death, Life-Threatening, Hospitalization, Other)
  Sender: FDA-Public Use
  Company Number: FR-PFIZER INC-2005166517

PATIENT
  Age: 55 Year
  Sex: Female

DRUGS (9)
  1. SUNITINIB MALATE [Suspect]
     Indication: RENAL CANCER
     Dosage: 50 MG, 1X/DAY
     Route: 048
     Dates: start: 20051121, end: 20051204
  2. KEPPRA [Concomitant]
     Dosage: 500 MG, X 2
     Route: 055
  3. TRILEPTAL [Concomitant]
     Dosage: 300 MG, X 2
  4. PROPRANOLOL [Concomitant]
     Dosage: 160 MG, UNK
  5. HYPERICUM EXTRACT [Concomitant]
     Dosage: UNK
  6. MEDROL [Concomitant]
     Dosage: UNK
  7. NEXIUM [Concomitant]
     Dosage: UNK
  8. FLUCONAZOLE [Concomitant]
     Dosage: UNK
  9. METEOSPASMYL [Concomitant]
     Dosage: UNK

REACTIONS (5)
  - ASTHENIA [None]
  - DYSPNOEA [None]
  - HYPOTENSION [None]
  - HYPOTHERMIA [None]
  - THROMBOCYTOPENIA [None]
